FAERS Safety Report 15814915 (Version 1)
Quarter: 2019Q1

REPORT INFORMATION
  Report Type: Spontaneous
  Country: FR (occurrence: FR)
  Receive Date: 20190111
  Receipt Date: 20190111
  Transmission Date: 20190417
  Serious: Yes (Life-Threatening, Other)
  Sender: FDA-Public Use
  Company Number: FR-ACCORD-101485

PATIENT
  Age: 87 Year
  Sex: Male

DRUGS (6)
  1. FLECAINE [Suspect]
     Active Substance: FLECAINIDE
     Route: 048
     Dates: start: 20180224, end: 20180224
  2. JANUMET [Suspect]
     Active Substance: METFORMIN HYDROCHLORIDE\SITAGLIPTIN PHOSPHATE
     Route: 048
     Dates: start: 20180224, end: 20180224
  3. GLIMEPIRIDE. [Suspect]
     Active Substance: GLIMEPIRIDE
     Route: 048
     Dates: start: 20180224, end: 20180224
  4. CELIPROLOL [Suspect]
     Active Substance: CELIPROLOL
     Route: 048
     Dates: start: 20180224, end: 20180224
  5. RILMENIDINE/RILMENIDINE PHOSPHATE [Suspect]
     Active Substance: RILMENIDINE
     Route: 048
     Dates: start: 20180224, end: 20180224
  6. TELMISARTAN. [Suspect]
     Active Substance: TELMISARTAN
     Route: 048
     Dates: start: 20180224, end: 20180224

REACTIONS (4)
  - Atrioventricular block complete [Recovered/Resolved]
  - Hypoglycaemic coma [Recovered/Resolved]
  - Bradycardia [Recovered/Resolved]
  - Product administration error [Unknown]

NARRATIVE: CASE EVENT DATE: 20180225
